FAERS Safety Report 11395220 (Version 2)
Quarter: 2015Q3

REPORT INFORMATION
  Report Type: Spontaneous
  Country: US (occurrence: US)
  Receive Date: 20150819
  Receipt Date: 20150929
  Transmission Date: 20151125
  Serious: No
  Sender: FDA-Public Use
  Company Number: US-PFIZER INC-2015267803

PATIENT
  Age: 68 Year
  Sex: Female
  Weight: 55.78 kg

DRUGS (14)
  1. FLUOCINONIDE. [Concomitant]
     Active Substance: FLUOCINONIDE
     Dosage: 0.05 %, 2X/DAY
  2. CORTISONE [Concomitant]
     Active Substance: CORTISONE\HYDROCORTISONE
     Dosage: 1 %, UNK (AFFECTED AREA-TWICE A DAY)
  3. VENTOLIN HFA [Concomitant]
     Active Substance: ALBUTEROL SULFATE
     Dosage: 90 ?G, 4X/DAY (90 MCG/ACTUATION HFA AEROSOL INHALER USING INHALER-EVERY SIX HOURS AS DIRECTED)
     Dates: start: 20150327
  4. LOSARTAN. [Concomitant]
     Active Substance: LOSARTAN
     Dosage: 100 MG, DAILY (EVERY MORNING)
     Route: 048
     Dates: start: 20140416
  5. MULTIVITAMIN /00097801/ [Concomitant]
     Active Substance: VITAMINS
     Dosage: 1 DF, 1X/DAY
     Route: 048
  6. SPIRIVA [Suspect]
     Active Substance: TIOTROPIUM BROMIDE MONOHYDRATE
     Dosage: 18 ?G, DAILY
     Dates: start: 20141205, end: 20150703
  7. VENLAFAXINE [Concomitant]
     Active Substance: VENLAFAXINE HYDROCHLORIDE
     Dosage: 75 MG, 2X/DAY
     Route: 048
     Dates: start: 20141110
  8. IBUPROFEN. [Concomitant]
     Active Substance: IBUPROFEN
     Indication: PAIN
     Dosage: 800 MG, AS NEEDED (THREE TIMES A DAY AS NEEDED)
     Route: 048
  9. LORATADINE. [Concomitant]
     Active Substance: LORATADINE
     Dosage: 10 MG, DAILY (EVERY MORNING)
     Route: 048
  10. RANITIDINE HCL [Concomitant]
     Active Substance: RANITIDINE HYDROCHLORIDE
     Dosage: 150 MG, 2X/DAY
     Route: 048
     Dates: start: 20150414, end: 20150613
  11. ATENOLOL. [Concomitant]
     Active Substance: ATENOLOL
     Dosage: 50 MG, DAILY (50 MG TABLET EVERY EVENING)
     Route: 048
     Dates: start: 20141222
  12. LYRICA [Suspect]
     Active Substance: PREGABALIN
     Dosage: 100 MG, 3X/DAY
     Route: 048
     Dates: start: 20141202, end: 20150620
  13. ATENOLOL. [Concomitant]
     Active Substance: ATENOLOL
     Dosage: 100 MG, DAILY (100 MG TABLET EVERY EVENING)
     Route: 048
     Dates: start: 20141222
  14. HYDROCORTISONE. [Concomitant]
     Active Substance: HYDROCORTISONE
     Dosage: 1 %, 4X/DAY (AFFECTED AREA-FOUR TIMES  A DAY)

REACTIONS (6)
  - Dry skin [Unknown]
  - Rash maculo-papular [Unknown]
  - Skin warm [Unknown]
  - Hypertension [Unknown]
  - Psoriasis [Unknown]
  - Rash pruritic [Recovering/Resolving]
